FAERS Safety Report 8339049-5 (Version None)
Quarter: 2012Q2

REPORT INFORMATION
  Report Type: 
  Country: None (occurrence: None)
  Receive Date: 20120502
  Receipt Date: 20120417
  Transmission Date: 20120825
  Serious: Yes (Hospitalization, Other)
  Sender: FDA-Public Use
  Company Number: 2012P1017925

PATIENT
  Age: 54 Year
  Sex: Male
  Weight: 77.8372 kg

DRUGS (2)
  1. RETIGABINE (NO PREF. NAME) [Suspect]
     Indication: DIAGNOSTIC PROCEDURE
     Dosage: 100 MG, TID, PO
     Route: 048
     Dates: start: 20120225, end: 20120407
  2. DIGOXIN [Suspect]
     Indication: DIAGNOSTIC PROCEDURE
     Dosage: .25 MG
     Dates: start: 20120215, end: 20120215

REACTIONS (1)
  - DIVERTICULITIS [None]
